FAERS Safety Report 6020343-8 (Version None)
Quarter: 2008Q4

REPORT INFORMATION
  Report Type: 
  Country: None (occurrence: None)
  Receive Date: 20081226
  Receipt Date: 20081215
  Transmission Date: 20090506
  Serious: Yes (Disabling)
  Sender: FDA-Public Use
  Company Number: BR-BAYER-200823582LA

PATIENT
  Age: 27 Year
  Sex: Female

DRUGS (4)
  1. BETAFERON [Suspect]
     Indication: RELAPSING-REMITTING MULTIPLE SCLEROSIS
     Route: 058
     Dates: start: 20060601, end: 20081205
  2. SERTRALINE [Concomitant]
     Indication: ANXIETY
     Dosage: TOTAL DAILY DOSE: 50 MG
     Route: 048
     Dates: start: 20080101
  3. SELENE [Concomitant]
     Indication: ORAL CONTRACEPTION
     Route: 048
     Dates: start: 20080401
  4. COPAXONE [Concomitant]
     Indication: RELAPSING-REMITTING MULTIPLE SCLEROSIS
     Route: 065

REACTIONS (5)
  - FAECAL INCONTINENCE [None]
  - FATIGUE [None]
  - MULTIPLE SCLEROSIS RELAPSE [None]
  - MUSCULAR WEAKNESS [None]
  - URINARY INCONTINENCE [None]
